FAERS Safety Report 9028849 (Version 1)
Quarter: 2013Q1

REPORT INFORMATION
  Report Type: Report from Study
  Country: CA (occurrence: CA)
  Receive Date: 20130124
  Receipt Date: 20130124
  Transmission Date: 20140127
  Serious: Yes (Other)
  Sender: FDA-Public Use
  Company Number: CA-JNJFOC-20130107946

PATIENT
  Age: 51 Year
  Sex: Female
  Weight: 76 kg

DRUGS (1)
  1. REMICADE [Suspect]
     Indication: PSORIASIS
     Dosage: 10 MG/ML
     Route: 042

REACTIONS (4)
  - Dysgeusia [Recovered/Resolved]
  - Fatigue [Unknown]
  - Headache [Unknown]
  - Pyrexia [Unknown]
